FAERS Safety Report 18353676 (Version 1)
Quarter: 2020Q4

REPORT INFORMATION
  Report Type: Spontaneous
  Country: US (occurrence: US)
  Receive Date: 20201006
  Receipt Date: 20201006
  Transmission Date: 20210114
  Serious: No
  Sender: FDA-Public Use
  Company Number: US-ROCHE-2627809

PATIENT
  Age: 50 Year
  Sex: Female

DRUGS (1)
  1. VEMURAFENIB. [Suspect]
     Active Substance: VEMURAFENIB
     Indication: HAIRY CELL LEUKAEMIA
     Route: 065

REACTIONS (3)
  - Intentional product use issue [Unknown]
  - Drug eruption [Unknown]
  - Off label use [Unknown]
